FAERS Safety Report 8345196-4 (Version None)
Quarter: 2012Q2

REPORT INFORMATION
  Report Type: 
  Country: None (occurrence: None)
  Receive Date: 20120508
  Receipt Date: 20120501
  Transmission Date: 20120825
  Serious: Yes (Hospitalization)
  Sender: FDA-Public Use
  Company Number: US-ACTELION-A-NJ2012-63762

PATIENT

DRUGS (3)
  1. TRACLEER [Suspect]
     Indication: PULMONARY ARTERIAL HYPERTENSION
     Dosage: UNK
     Route: 048
     Dates: start: 20100625, end: 20120101
  2. ASPIRIN [Concomitant]
  3. REVATIO [Concomitant]

REACTIONS (3)
  - HYPOTENSION [None]
  - ROAD TRAFFIC ACCIDENT [None]
  - HAND FRACTURE [None]
